FAERS Safety Report 8394420-0 (Version None)
Quarter: 2012Q2

REPORT INFORMATION
  Report Type: 
  Country: None (occurrence: None)
  Receive Date: 20120530
  Receipt Date: 20120523
  Transmission Date: 20120825
  Serious: Yes (Hospitalization)
  Sender: FDA-Public Use
  Company Number: PHHY2012ZA044892

PATIENT
  Sex: Female
  Weight: 73 kg

DRUGS (10)
  1. GALVUS [Suspect]
     Indication: DIABETES MELLITUS
     Dates: start: 20110901
  2. PLAVIX [Concomitant]
  3. EXFORGE [Suspect]
     Indication: HYPERTENSION
     Dates: start: 20120101
  4. LANTUS [Concomitant]
     Indication: DIABETES MELLITUS
  5. OMEPRAZOLE [Concomitant]
  6. ZIAK [Concomitant]
  7. APIDRA [Concomitant]
     Indication: DIABETES MELLITUS
  8. SYMBICORT [Concomitant]
     Indication: ASTHMA
  9. CRESTOR [Concomitant]
  10. SINGULAIR [Concomitant]

REACTIONS (6)
  - LUNG INFECTION [None]
  - EMOTIONAL DISTRESS [None]
  - INFLUENZA [None]
  - MALAISE [None]
  - GLYCOSYLATED HAEMOGLOBIN INCREASED [None]
  - CHEST DISCOMFORT [None]
